FAERS Safety Report 18509456 (Version 1)
Quarter: 2020Q4

REPORT INFORMATION
  Report Type: Spontaneous
  Country: DE (occurrence: DE)
  Receive Date: 20201117
  Receipt Date: 20201117
  Transmission Date: 20210114
  Serious: Yes (Hospitalization, Other)
  Sender: FDA-Public Use
  Company Number: DE-TEVA-2020-DE-1848575

PATIENT
  Age: 77 Year
  Sex: Female
  Weight: 101.7 kg

DRUGS (18)
  1. BISOPROLOL [Suspect]
     Active Substance: BISOPROLOL
     Dosage: 10 MILLIGRAM DAILY;  1-0-0-1
     Route: 048
  2. LERCANIDIPINE [Concomitant]
     Active Substance: LERCANIDIPINE
     Dosage: 40 MILLIGRAM DAILY; 1-0-0-1,
     Route: 048
  3. METAMIZOL [Concomitant]
     Active Substance: METAMIZOLE SODIUM
     Dosage: 1500 MILLIGRAM DAILY;  1-1-1-0,
     Route: 048
  4. MAGNESIUM CITRATE. [Concomitant]
     Active Substance: MAGNESIUM CITRATE
     Dosage: 250 MILLIGRAM DAILY;  0-0-1-0,
     Route: 048
  5. PREGABALIN. [Suspect]
     Active Substance: PREGABALIN
     Dosage: 100 MILLIGRAM DAILY; 1-0-1-0,
     Route: 048
  6. TORASEMID [Concomitant]
     Active Substance: TORSEMIDE
     Dosage: 40 MILLIGRAM DAILY; 1-1-0-0,
     Route: 048
  7. INSULIN LISPRO [Concomitant]
     Active Substance: INSULIN LISPRO
     Dosage: ACCORDING TO THE SCHEME, AMPOULES
     Route: 058
  8. QUETIAPINE. [Suspect]
     Active Substance: QUETIAPINE
     Dosage: 2 DOSAGE FORMS DAILY; 50 MG, 0-0-0-2, EXTENDED-RELEASE TABLETS
     Route: 048
  9. PIPAMPERONE [Suspect]
     Active Substance: PIPAMPERONE
     Dosage: 40 MG, 0.5-0-0-1,
     Route: 048
  10. TILIDINE/NALOXONE [Concomitant]
     Active Substance: NALOXONE HYDROCHLORIDE\TILIDINE HYDROCHLORIDE
     Dosage: 1 DOSAGE FORMS DAILY; 4 | 50 MG, 0-0-0-1, PROLONGED-RELEASE TABLETS
     Route: 048
  11. PANTOPRAZOL [Concomitant]
     Active Substance: PANTOPRAZOLE SODIUM
     Dosage: 20 MILLIGRAM DAILY;  1-0-0-0,
     Route: 048
  12. DIGIMERCK 0.1 [Concomitant]
     Dosage: .1 MILLIGRAM DAILY;  1-0-0-0,
     Route: 048
  13. BUDESONIDE. [Concomitant]
     Active Substance: BUDESONIDE
     Dosage: .8 MILLIGRAM DAILY; 1-0-1-0, METERED DOSE INHALER
     Route: 055
  14. TILIDINE/NALOXONE [Concomitant]
     Active Substance: NALOXONE HYDROCHLORIDE\TILIDINE HYDROCHLORIDE
     Dosage: 8 | 100 MG, 1-0-0.5-0, SUSTAINED-RELEASE TABLETS
     Route: 048
  15. LORAZEPAM. [Suspect]
     Active Substance: LORAZEPAM
     Dosage: 1 DOSAGE FORMS DAILY; 0.5 MG, 0.5-0-0.5-0
     Route: 048
  16. EDOXABAN [Concomitant]
     Active Substance: EDOXABAN TOSYLATE
     Dosage: 60 MILLIGRAM DAILY; 1-0-0-0
     Route: 048
  17. MIRTAZAPIN [Concomitant]
     Active Substance: MIRTAZAPINE
     Dosage: 45 MILLIGRAM DAILY; 0-0-0-1,
     Route: 048
  18. INSULIN DETEMIR [Concomitant]
     Active Substance: INSULIN DETEMIR
     Dosage: 22 IU (INTERNATIONAL UNIT) DAILY; 22 IU, 0-0-0-1, AMPOULES
     Route: 058

REACTIONS (6)
  - Tachycardia [Unknown]
  - Rhonchi [Unknown]
  - Dyspnoea [Unknown]
  - Wheezing [Unknown]
  - Arrhythmia [Unknown]
  - General physical health deterioration [Unknown]

NARRATIVE: CASE EVENT DATE: 20200211
